FAERS Safety Report 18193779 (Version 1)
Quarter: 2020Q3

REPORT INFORMATION
  Report Type: Other
  Country: US (occurrence: US)
  Receive Date: 20200825
  Receipt Date: 20200825
  Transmission Date: 20201103
  Serious: Yes (Hospitalization)
  Sender: FDA-Public Use
  Company Number: US-ROCHE-2663535

PATIENT
  Age: 49 Year
  Sex: Male
  Weight: 113.5 kg

DRUGS (9)
  1. SERTRALINE [Concomitant]
     Active Substance: SERTRALINE HYDROCHLORIDE
     Indication: RESTLESS LEGS SYNDROME
     Dosage: ONGOING: YES
     Route: 048
  2. RITUXAN [Suspect]
     Active Substance: RITUXIMAB
     Indication: RELAPSING MULTIPLE SCLEROSIS
     Route: 065
  3. ROPINIROLE ER [Concomitant]
     Active Substance: ROPINIROLE
     Indication: RESTLESS LEGS SYNDROME
     Dosage: ONGOING: YES
     Route: 048
  4. OCREVUS [Suspect]
     Active Substance: OCRELIZUMAB
     Dosage: INFUSE 600 MG AND REPEAT IN 6 MONTHS
     Route: 065
  5. CLONIDINE. [Concomitant]
     Active Substance: CLONIDINE
     Indication: RESTLESS LEGS SYNDROME
     Dosage: ONGOING: YES
     Route: 048
  6. OCREVUS [Suspect]
     Active Substance: OCRELIZUMAB
     Indication: RELAPSING-REMITTING MULTIPLE SCLEROSIS
     Dosage: ONGOING: NO
     Route: 042
     Dates: start: 2017
  7. OCREVUS [Suspect]
     Active Substance: OCRELIZUMAB
     Dosage: INFUSE 300 MG AND REPEAT IN 15 DAYS
     Route: 065
  8. QUETIAPINE. [Concomitant]
     Active Substance: QUETIAPINE
     Indication: INSOMNIA
     Dosage: ONGOING: YES
     Route: 048
  9. MODAFINIL. [Concomitant]
     Active Substance: MODAFINIL
     Dosage: ONGOING: YES
     Route: 048

REACTIONS (6)
  - Dyspepsia [Not Recovered/Not Resolved]
  - Urinary tract infection [Not Recovered/Not Resolved]
  - Pyrexia [Recovered/Resolved]
  - Intentional product use issue [Unknown]
  - Fatigue [Not Recovered/Not Resolved]
  - Off label use [Unknown]

NARRATIVE: CASE EVENT DATE: 202007
